FAERS Safety Report 8352686-7 (Version None)
Quarter: 2012Q2

REPORT INFORMATION
  Report Type: 
  Country: None (occurrence: None)
  Receive Date: 20120511
  Receipt Date: 20120504
  Transmission Date: 20120825
  Serious: No
  Sender: FDA-Public Use
  Company Number: US-B.I. PHARMACEUTICALS,INC./RIDGEFIELD-2012-BP-10229BP

PATIENT
  Sex: Male

DRUGS (2)
  1. TRADJENTA [Suspect]
     Indication: DIABETES MELLITUS INADEQUATE CONTROL
  2. VICTOZA [Concomitant]

REACTIONS (1)
  - DERMATITIS ALLERGIC [None]
